FAERS Safety Report 6855684-5 (Version None)
Quarter: 2010Q3

REPORT INFORMATION
  Report Type: 
  Country: None (occurrence: None)
  Receive Date: 20100719
  Receipt Date: 20090812
  Transmission Date: 20110219
  Serious: No
  Sender: FDA-Public Use
  Company Number: US-KINGPHARMUSA00001-K200900977

PATIENT
  Sex: Female
  Weight: 52.154 kg

DRUGS (7)
  1. LEVOXYL [Suspect]
     Indication: HYPOTHYROIDISM
     Dosage: 100 MCG, QD
     Route: 048
     Dates: start: 20040101, end: 20090101
  2. LEVOXYL [Suspect]
     Dosage: 150 MCG, QD
     Route: 048
     Dates: start: 20090721, end: 20090801
  3. LEVOXYL [Suspect]
     Dosage: 112.5 MCG, QD
     Route: 048
     Dates: start: 20090804, end: 20090811
  4. LEVOXYL [Suspect]
     Dosage: 50 MCG, QD
     Route: 048
     Dates: start: 20040101, end: 20040101
  5. LEVOXYL [Suspect]
     Dosage: 75 MCG, QD
     Route: 048
     Dates: start: 20040101, end: 20040101
  6. ZOLOFT [Concomitant]
     Indication: ANXIETY
     Dosage: 100 MG, QD
     Route: 048
     Dates: start: 20040101
  7. ZOLOFT [Concomitant]
     Indication: DEPRESSION

REACTIONS (10)
  - ARTHRALGIA [None]
  - BLOOD TEST ABNORMAL [None]
  - DIZZINESS [None]
  - FATIGUE [None]
  - HALLUCINATION, AUDITORY [None]
  - HALLUCINATION, OLFACTORY [None]
  - HYPERHIDROSIS [None]
  - HYPERTHYROIDISM [None]
  - SLUGGISHNESS [None]
  - VOMITING [None]
